FAERS Safety Report 24392498 (Version 1)
Quarter: 2024Q4

REPORT INFORMATION
  Report Type: Spontaneous
  Country: US (occurrence: None)
  Receive Date: 20241003
  Receipt Date: 20241003
  Transmission Date: 20250114
  Serious: Yes (Other)
  Sender: Public
  Company Number: None

PATIENT
  Age: 5 Year
  Sex: Male
  Weight: 20.25 kg

DRUGS (2)
  1. MONTELUKAST [Suspect]
     Active Substance: MONTELUKAST
     Indication: Seasonal allergy
     Dosage: OTHER QUANTITY : 1 TABLET(S);?FREQUENCY : AT BEDTIME;?
     Route: 048
     Dates: start: 20240530, end: 20240927
  2. Hiya multivitamin [Concomitant]

REACTIONS (6)
  - Withdrawal syndrome [None]
  - Agitation [None]
  - Middle insomnia [None]
  - Aggression [None]
  - Aggression [None]
  - Screaming [None]

NARRATIVE: CASE EVENT DATE: 20240927
